FAERS Safety Report 7532825-8 (Version None)
Quarter: 2011Q2

REPORT INFORMATION
  Report Type: 
  Country: None (occurrence: None)
  Receive Date: 20110608
  Receipt Date: 20110601
  Transmission Date: 20111010
  Serious: Yes (Hospitalization)
  Sender: FDA-Public Use
  Company Number: FR-PFIZER INC-2011096829

PATIENT
  Age: 66 Year
  Sex: Female

DRUGS (2)
  1. GEMZAR [Concomitant]
     Dosage: UNK
     Dates: start: 20110408
  2. SOLU-MEDROL [Suspect]
     Indication: PREMEDICATION
     Dosage: 80 MG, SINGLE, 90 MINUTES
     Route: 042
     Dates: start: 20110408, end: 20110408

REACTIONS (1)
  - DERMATITIS ALLERGIC [None]
